FAERS Safety Report 7530270-2 (Version None)
Quarter: 2011Q2

REPORT INFORMATION
  Report Type: 
  Country: None (occurrence: None)
  Receive Date: 20110531
  Receipt Date: 20110517
  Transmission Date: 20111010
  Serious: Yes (Hospitalization)
  Sender: FDA-Public Use
  Company Number: 2011MA006011

PATIENT
  Age: 83 Year
  Sex: Female

DRUGS (7)
  1. CARBAMAZEPINE [Concomitant]
  2. ALENDRONATE SODIUM [Concomitant]
  3. CALCIUM CARBONATE [Concomitant]
  4. LEVETIRACETAM [Concomitant]
  5. CALCIUM CARBONATE [Concomitant]
  6. CITALOPRAM HYDROBROMIDE [Suspect]
     Indication: DEPRESSION
     Dosage: 10 MG, QD
  7. CARBASALATE [Concomitant]

REACTIONS (11)
  - FATIGUE [None]
  - BLOOD PRESSURE INCREASED [None]
  - LOSS OF CONSCIOUSNESS [None]
  - COAGULATION FACTOR V LEVEL DECREASED [None]
  - HAEMANGIOMA OF LIVER [None]
  - HEPATITIS [None]
  - HEPATOTOXICITY [None]
  - HEPATITIS VIRAL [None]
  - CONFUSIONAL STATE [None]
  - FALL [None]
  - HEPATOMEGALY [None]
